FAERS Safety Report 6390876-3 (Version None)
Quarter: 2009Q4

REPORT INFORMATION
  Report Type: 
  Country: None (occurrence: None)
  Receive Date: 20091006
  Receipt Date: 20090923
  Transmission Date: 20100525
  Serious: Yes (Other)
  Sender: FDA-Public Use
  Company Number: NO-GENENTECH-291287

PATIENT

DRUGS (2)
  1. MABTHERA [Suspect]
     Indication: RHEUMATOID ARTHRITIS
     Dosage: 1000 MG, SINGLE
     Route: 042
     Dates: start: 20090609
  2. EYE DROPS (UNK INGREDIENTS) [Concomitant]
     Indication: KERATITIS

REACTIONS (1)
  - HAEMORRHAGE [None]
